FAERS Safety Report 24830217 (Version 1)
Quarter: 2025Q1

REPORT INFORMATION
  Report Type: Spontaneous
  Country: GR (occurrence: GR)
  Receive Date: 20250110
  Receipt Date: 20250110
  Transmission Date: 20250409
  Serious: Yes (Other)
  Sender: ACCORD
  Company Number: GR-BRISTOL-MYERS SQUIBB COMPANY-2024-134645

PATIENT
  Age: 79 Year
  Sex: Male

DRUGS (7)
  1. AZACITIDINE [Suspect]
     Active Substance: AZACITIDINE
     Indication: 5q minus syndrome
  2. DEFERASIROX [Suspect]
     Active Substance: DEFERASIROX
     Indication: 5q minus syndrome
  3. FILGRASTIM [Suspect]
     Active Substance: FILGRASTIM
     Indication: 5q minus syndrome
  4. LENALIDOMIDE [Suspect]
     Active Substance: LENALIDOMIDE
     Indication: 5q minus syndrome
  5. EPOETIN ALFA [Suspect]
     Active Substance: ERYTHROPOIETIN
     Indication: 5q minus syndrome
  6. LUSPATERCEPT [Suspect]
     Active Substance: LUSPATERCEPT
     Indication: 5q minus syndrome
  7. LUSPATERCEPT [Suspect]
     Active Substance: LUSPATERCEPT
     Indication: 5q minus syndrome

REACTIONS (5)
  - Drug ineffective [Unknown]
  - Haematotoxicity [Recovering/Resolving]
  - Anaemia [Recovering/Resolving]
  - Neutropenia [Recovering/Resolving]
  - Thrombocytopenia [Not Recovered/Not Resolved]
